FAERS Safety Report 14801101 (Version 1)
Quarter: 2018Q2

REPORT INFORMATION
  Report Type: Spontaneous
  Country: US (occurrence: US)
  Receive Date: 20180422
  Receipt Date: 20180422
  Transmission Date: 20180711
  Serious: Yes (Other)
  Sender: FDA-Public Use
  Company Number: None

PATIENT
  Age: 39 Year
  Sex: Female

DRUGS (1)
  1. PREMIUM KRATOM PHOENIX RED VEIN BALI [Suspect]
     Active Substance: MITRAGYNINE\HERBALS
     Indication: STRESS
     Route: 048

REACTIONS (1)
  - Drug dependence [None]

NARRATIVE: CASE EVENT DATE: 20180401
